FAERS Safety Report 21419898 (Version 1)
Quarter: 2022Q4

REPORT INFORMATION
  Report Type: Spontaneous
  Country: US (occurrence: None)
  Receive Date: 20221006
  Receipt Date: 20221006
  Transmission Date: 20230112
  Serious: Yes (Death)
  Sender: FDA-Public Use
  Company Number: None

PATIENT
  Age: 82 Year
  Sex: Male

DRUGS (1)
  1. VYNDAMAX [Suspect]
     Active Substance: TAFAMIDIS
     Indication: Familial amyloidosis
     Dosage: FREQUENCY : DAILY;?
     Route: 048
     Dates: start: 202112

REACTIONS (1)
  - Death [None]

NARRATIVE: CASE EVENT DATE: 20221004
